FAERS Safety Report 6299843-1 (Version None)
Quarter: 2009Q3

REPORT INFORMATION
  Report Type: 
  Country: None (occurrence: None)
  Receive Date: 20090806
  Receipt Date: 20090723
  Transmission Date: 20100115
  Serious: Yes (Life-Threatening)
  Sender: FDA-Public Use
  Company Number: JP-ABBOTT-09P-087-0589198-00

PATIENT
  Age: 83 Year
  Sex: Male

DRUGS (1)
  1. LEUPLIN SR FOR INJECTION 11.25 MG [Suspect]
     Indication: PROSTATE CANCER STAGE II
     Route: 058
     Dates: start: 20061212

REACTIONS (1)
  - OESOPHAGEAL CARCINOMA [None]
